FAERS Safety Report 5041047-4 (Version None)
Quarter: 2006Q2

REPORT INFORMATION
  Report Type: 
  Country: None (occurrence: None)
  Receive Date: 20060630
  Receipt Date: 20060630
  Transmission Date: 20061013
  Serious: Yes (Hospitalization)
  Sender: FDA-Public Use
  Company Number: None

PATIENT
  Age: 66 Year
  Sex: Male
  Weight: 46.2669 kg

DRUGS (1)
  1. LISINOPRIL [Suspect]
     Indication: HYPERTENSION
     Dosage: 10 MG DAILY PO
     Route: 048
     Dates: start: 20060524, end: 20060624

REACTIONS (14)
  - ALCOHOLISM [None]
  - CHILLS [None]
  - CHRONIC OBSTRUCTIVE PULMONARY DISEASE [None]
  - DYSPNOEA [None]
  - FEELING HOT [None]
  - NASAL OEDEMA [None]
  - PERIORBITAL OEDEMA [None]
  - PNEUMONIA [None]
  - POSTNASAL DRIP [None]
  - RHINITIS ALLERGIC [None]
  - RHONCHI [None]
  - SWELLING FACE [None]
  - TREATMENT NONCOMPLIANCE [None]
  - WHEEZING [None]
